FAERS Safety Report 4346324-8 (Version None)
Quarter: 2004Q1

REPORT INFORMATION
  Report Type: 
  Country: None (occurrence: None)
  Receive Date: 20040325
  Receipt Date: 20031215
  Transmission Date: 20041129
  Serious: No
  Sender: FDA-Public Use
  Company Number: USA031254652

PATIENT
  Age: 82 Year
  Sex: Female

DRUGS (5)
  1. FORTEO [Suspect]
  2. EVISTA [Concomitant]
  3. ACCUPRIL [Concomitant]
  4. MAXZIDE [Concomitant]
  5. SYNTHROID [Concomitant]

REACTIONS (1)
  - INJECTION SITE HAEMORRHAGE [None]
